FAERS Safety Report 19866265 (Version 1)
Quarter: 2021Q3

REPORT INFORMATION
  Report Type: Other
  Country: CA (occurrence: CA)
  Receive Date: 20210922
  Receipt Date: 20210922
  Transmission Date: 20211014
  Serious: Yes (Other)
  Sender: FDA-Public Use
  Company Number: CA-APOTEX-2021AP042732

PATIENT
  Sex: Male

DRUGS (2)
  1. ACETAMINOPHEN. [Suspect]
     Active Substance: ACETAMINOPHEN
     Indication: PAIN
  2. ACETAMINOPHEN. [Suspect]
     Active Substance: ACETAMINOPHEN
     Indication: PYREXIA
     Dosage: UNK
     Route: 048

REACTIONS (28)
  - Aphthous ulcer [Unknown]
  - Depression [Unknown]
  - Headache [Unknown]
  - Croup infectious [Unknown]
  - Aphasia [Unknown]
  - Asthma [Unknown]
  - Attention deficit hyperactivity disorder [Unknown]
  - Pain [Unknown]
  - Psychomotor hyperactivity [Unknown]
  - Sensory disturbance [Unknown]
  - Influenza like illness [Unknown]
  - Oppositional defiant disorder [Unknown]
  - Anxiety [Unknown]
  - Atopy [Unknown]
  - Fatigue [Unknown]
  - Hypotonia [Unknown]
  - Cyclic vomiting syndrome [Unknown]
  - Obsessive-compulsive disorder [Unknown]
  - Aggression [Unknown]
  - Anaphylactic reaction [Unknown]
  - Diarrhoea [Unknown]
  - Eczema [Unknown]
  - Infection [Unknown]
  - Memory impairment [Unknown]
  - Pyrexia [Unknown]
  - Sleep disorder [Unknown]
  - Hypoglycaemia [Unknown]
  - Lethargy [Unknown]
